FAERS Safety Report 9277120 (Version 1)
Quarter: 2013Q2

REPORT INFORMATION
  Report Type: Report from Study
  Country: TW (occurrence: TW)
  Receive Date: 20130507
  Receipt Date: 20130507
  Transmission Date: 20140414
  Serious: No
  Sender: FDA-Public Use
  Company Number: PHHY2013TW042135

PATIENT
  Age: 61 Year
  Sex: Female

DRUGS (37)
  1. AMN107 [Suspect]
     Dosage: 600 MG, UNK
     Dates: start: 20090527
  2. FOSTER                             /06206901/ [Concomitant]
     Indication: ASTHMA
     Dosage: UNK
     Dates: start: 20120601, end: 20120629
  3. MONTELUKAST SODIUM [Concomitant]
     Indication: ASTHMA
     Dosage: UNK
     Dates: start: 20120601, end: 20120615
  4. MONTELUKAST SODIUM [Concomitant]
     Dosage: UNK
     Dates: end: 20120629
  5. ACETAMINOPHEN [Concomitant]
     Indication: PAIN
     Dosage: UNK
     Dates: end: 20110216
  6. ACETAMINOPHEN [Concomitant]
     Dosage: UNK
     Dates: start: 20120516, end: 20120521
  7. CIMETIDINE [Concomitant]
     Indication: PEPTIC ULCER
     Dosage: UNK
     Dates: start: 20100210, end: 20120328
  8. LEVOCETIRIZINE [Concomitant]
     Indication: RASH PRURITIC
     Dosage: UNK
     Dates: start: 20101027, end: 20110907
  9. LEVOCETIRIZINE [Concomitant]
     Dosage: UNK
     Dates: start: 20120328, end: 20120919
  10. MAGNESIUM OXIDE [Concomitant]
     Indication: CONSTIPATION
     Dosage: UNK
     Dates: start: 20080618
  11. METFORMIN [Concomitant]
     Indication: DIABETES MELLITUS
     Dosage: UNK
     Dates: start: 20090624
  12. NEO-CORTISONE [Concomitant]
     Indication: PRURITUS
     Dosage: UNK
     Dates: start: 20081008, end: 20120424
  13. PREDNISOLONE [Concomitant]
     Indication: OSTEOPOROSIS
     Dosage: UNK
     Dates: start: 20101027, end: 20110330
  14. PREDNISOLONE [Concomitant]
     Dosage: UNK
     Dates: start: 20110413
  15. TRAMADOL [Concomitant]
     Indication: PAIN
     Dosage: UNK
     Dates: start: 20100310, end: 20110316
  16. ZOLPIDEM [Concomitant]
     Indication: INSOMNIA
     Dosage: UNK
     Dates: start: 20100602, end: 20110907
  17. IBUPROFEN [Concomitant]
     Indication: PAIN
     Dosage: UNK
     Dates: start: 20110216, end: 20110413
  18. IBUPROFEN [Concomitant]
     Dosage: UNK
     Dates: start: 20110615
  19. ULTRACET [Concomitant]
     Indication: PAIN
     Dosage: UNK
     Dates: start: 20110316, end: 20110608
  20. ULTRACET [Concomitant]
     Dosage: UNK
     Dates: start: 20120328
  21. CICLOPIROX OLAMINE [Concomitant]
     Indication: RASH
     Dosage: UNK
     Dates: start: 20110413, end: 20110615
  22. ETOFENAMATE [Concomitant]
     Indication: PAIN
     Dosage: UNK
     Dates: start: 20110511, end: 20110615
  23. ACETYLCYSTEIN [Concomitant]
     Indication: PNEUMONIA
     Dosage: UNK
     Dates: start: 20120516, end: 20120615
  24. AMOXICILLIN [Concomitant]
     Indication: PNEUMONIA
     Dosage: UNK
     Dates: start: 20120518, end: 20120523
  25. BENZONATATE [Concomitant]
     Indication: COUGH
     Dosage: UNK
     Dates: start: 20120516, end: 20120521
  26. DEXTROMETHORPHAN [Concomitant]
     Indication: COUGH
     Dosage: UNK
     Dates: start: 20120517, end: 20120615
  27. GLIPIZID [Concomitant]
     Indication: DIABETES MELLITUS
     Dosage: UNK
     Dates: start: 20120502
  28. LEVOFLOXACIN [Concomitant]
     Indication: ASTHMA
     Dosage: UNK
     Dates: start: 20120522, end: 20120531
  29. LORATADINE [Concomitant]
     Indication: ASTHMA
     Dosage: UNK
     Dates: start: 20120519, end: 20120522
  30. METHYLPREDNISOLONE [Concomitant]
     Indication: ASTHMA
     Dosage: UNK
     Dates: start: 20120516, end: 20120523
  31. MOXIFLOXACIN [Concomitant]
     Indication: PNEUMONIA
     Dosage: UNK
     Dates: start: 20120516, end: 20120521
  32. HUMAN-INSULIN ^NORDISK^ [Concomitant]
     Indication: DIABETES MELLITUS
     Dosage: UNK
     Dates: start: 20120516, end: 20120516
  33. HUMAN-INSULIN ^NORDISK^ [Concomitant]
     Dosage: UNK
     Dates: start: 20120521, end: 20120521
  34. THEOPHYLLINE [Concomitant]
     Indication: ASTHMA
     Dosage: UNK
     Dates: start: 20120519, end: 20120615
  35. TRANEXAMIC ACID [Concomitant]
     Indication: HAEMOPTYSIS
     Dosage: UNK
     Dates: start: 20120518, end: 20120531
  36. FAMOTIDINE [Concomitant]
     Indication: PEPTIC ULCER
     Dosage: UNK
     Dates: start: 20120627
  37. METHOCARBAMOL [Concomitant]
     Indication: MUSCLE SPASMS
     Dosage: UNK
     Dates: start: 20120725

REACTIONS (1)
  - Lipase increased [Unknown]
